FAERS Safety Report 12454319 (Version 1)
Quarter: 2016Q2

REPORT INFORMATION
  Report Type: Spontaneous
  Country: BR (occurrence: BR)
  Receive Date: 20160610
  Receipt Date: 20160610
  Transmission Date: 20160815
  Serious: Yes (Other)
  Sender: FDA-Public Use
  Company Number: BR-PFIZER INC-2012279538

PATIENT
  Age: 70 Year
  Sex: Female

DRUGS (2)
  1. XALATAN [Suspect]
     Active Substance: LATANOPROST
     Dosage: 1 DROP AT NIGHT
     Route: 047
     Dates: start: 2002
  2. XALATAN [Suspect]
     Active Substance: LATANOPROST
     Indication: GLAUCOMA
     Dosage: 6.0UG (2 DROPS IN EACH EYE), 3X/DAY
     Route: 047

REACTIONS (2)
  - Product use issue [Recovered/Resolved]
  - Cataract [Unknown]
